FAERS Safety Report 7523348-0 (Version None)
Quarter: 2011Q2

REPORT INFORMATION
  Report Type: 
  Country: None (occurrence: None)
  Receive Date: 20110603
  Receipt Date: 20110519
  Transmission Date: 20111010
  Serious: Yes (Hospitalization, Congenital Anomaly)
  Sender: FDA-Public Use
  Company Number: A0929928A

PATIENT
  Sex: Female

DRUGS (3)
  1. PAXIL [Suspect]
     Route: 064
  2. TOBACCO [Concomitant]
     Route: 064
  3. ALCOHOL [Concomitant]
     Indication: ALCOHOLIC
     Route: 064

REACTIONS (5)
  - DRUG EXPOSURE DURING PREGNANCY [None]
  - EAR MALFORMATION [None]
  - VENTRICULAR SEPTAL DEFECT [None]
  - CONGENITAL MUSCULOSKELETAL ANOMALY [None]
  - CLEFT LIP AND PALATE [None]
